FAERS Safety Report 6093560-9 (Version None)
Quarter: 2009Q1

REPORT INFORMATION
  Report Type: 
  Country: None (occurrence: None)
  Receive Date: 20090226
  Receipt Date: 20090216
  Transmission Date: 20090719
  Serious: Yes (Death, Other)
  Sender: FDA-Public Use
  Company Number: US-TEVA-185772USA

PATIENT
  Age: 55 Year
  Sex: Male

DRUGS (2)
  1. ATROPINE SULFATE, INJECTION, 0.4 MG/ML,  IN 1ML OR 20ML VOL [Suspect]
  2. DOBUTAMINE HCL [Suspect]
     Dosage: 50 MCG/KG/MINUTE

REACTIONS (1)
  - ANEURYSM RUPTURED [None]
